FAERS Safety Report 12231721 (Version 6)
Quarter: 2016Q2

REPORT INFORMATION
  Report Type: Report from Study
  Country: US (occurrence: US)
  Receive Date: 20160401
  Receipt Date: 20160503
  Transmission Date: 20160815
  Serious: Yes (Hospitalization, Other)
  Sender: FDA-Public Use
  Company Number: US-GILEAD-2016-0202428

PATIENT
  Age: 49 Year
  Sex: Female

DRUGS (5)
  1. COUMADIN [Concomitant]
     Active Substance: WARFARIN SODIUM
  2. REMODULIN [Concomitant]
     Active Substance: TREPROSTINIL
  3. ADCIRCA [Concomitant]
     Active Substance: TADALAFIL
  4. UPTRAVI [Concomitant]
     Active Substance: SELEXIPAG
  5. AMBRISENTAN [Suspect]
     Active Substance: AMBRISENTAN
     Indication: PRODUCT USED FOR UNKNOWN INDICATION
     Dosage: 5 MG, QD
     Route: 065
     Dates: start: 20150327

REACTIONS (16)
  - Catheter site pain [Recovering/Resolving]
  - Headache [Unknown]
  - Rash pruritic [Not Recovered/Not Resolved]
  - Migraine [Unknown]
  - Cellulitis [Unknown]
  - Application site rash [Unknown]
  - Eyelid oedema [Not Recovered/Not Resolved]
  - Device dislocation [Unknown]
  - Dyspnoea [Unknown]
  - Catheter placement [Unknown]
  - Application site reaction [Unknown]
  - Device related infection [Unknown]
  - Swelling face [Unknown]
  - Decreased appetite [Unknown]
  - Urticaria [Not Recovered/Not Resolved]
  - Application site erosion [Unknown]
